FAERS Safety Report 12448301 (Version 4)
Quarter: 2016Q3

REPORT INFORMATION
  Report Type: Spontaneous
  Country: PK (occurrence: PK)
  Receive Date: 20160608
  Receipt Date: 20160805
  Transmission Date: 20161109
  Serious: Yes (Life-Threatening, Other)
  Sender: FDA-Public Use
  Company Number: PK-SA-2016SA106811

PATIENT
  Age: 60 Year
  Sex: Female

DRUGS (2)
  1. CLEXANE [Suspect]
     Active Substance: ENOXAPARIN SODIUM
     Indication: THROMBOSIS PROPHYLAXIS
     Dosage: 80MG/30MG/30MG
     Route: 058
     Dates: start: 20160602
  2. CLEXANE [Suspect]
     Active Substance: ENOXAPARIN SODIUM
     Indication: THROMBOSIS PROPHYLAXIS
     Dosage: 80MG/30MG/30MG
     Route: 058
     Dates: start: 20160602

REACTIONS (5)
  - Chest pain [Not Recovered/Not Resolved]
  - Drug ineffective [Unknown]
  - Hypotension [Not Recovered/Not Resolved]
  - Shock [Not Recovered/Not Resolved]
  - Vascular stent thrombosis [Not Recovered/Not Resolved]

NARRATIVE: CASE EVENT DATE: 20160602
